FAERS Safety Report 20549563 (Version 3)
Quarter: 2022Q1

REPORT INFORMATION
  Report Type: Spontaneous
  Country: GB (occurrence: GB)
  Receive Date: 20220303
  Receipt Date: 20220328
  Transmission Date: 20220423
  Serious: Yes (Disabling)
  Sender: FDA-Public Use
  Company Number: GB-AMGEN-GBRSP2022034435

PATIENT
  Age: 63 Year
  Sex: Female

DRUGS (48)
  1. TRASTUZUMAB [Suspect]
     Active Substance: TRASTUZUMAB
     Indication: HER2 positive breast cancer
     Dosage: 483 MILLIGRAM, Q3WK
     Route: 041
     Dates: start: 20170508, end: 20170508
  2. TRASTUZUMAB [Suspect]
     Active Substance: TRASTUZUMAB
     Dosage: 375 MILLIGRAM, Q3WK
     Route: 042
     Dates: start: 20170529, end: 20170829
  3. TRASTUZUMAB [Suspect]
     Active Substance: TRASTUZUMAB
     Dosage: 336 MILLIGRAM, Q3WK (6 CYCLES, DOSE MODIFIED )
     Route: 041
     Dates: start: 20170920, end: 20180103
  4. TRASTUZUMAB [Suspect]
     Active Substance: TRASTUZUMAB
     Dosage: 220 MILLIGRAM, Q3WK (TIW)
     Route: 042
     Dates: start: 20180420, end: 20180622
  5. CAPECITABINE [Suspect]
     Active Substance: CAPECITABINE
     Indication: HER2 positive breast cancer
     Dosage: 3000 MILLIGRAM, QD
     Route: 048
     Dates: start: 20180809
  6. CAPECITABINE [Suspect]
     Active Substance: CAPECITABINE
     Dosage: 1500 MILLIGRAM, QD (0.5 D)
     Route: 048
     Dates: start: 20180809
  7. CYCLOPHOSPHAMIDE [Suspect]
     Active Substance: CYCLOPHOSPHAMIDE
     Indication: Product used for unknown indication
     Dosage: 1000 MILLIGRAM, TIW
     Route: 042
     Dates: start: 20201019, end: 20201109
  8. CYCLOPHOSPHAMIDE [Suspect]
     Active Substance: CYCLOPHOSPHAMIDE
     Dosage: 900 MILLIGRAM, Q3WK
     Route: 042
     Dates: start: 20201130, end: 20210201
  9. CYCLOPHOSPHAMIDE [Suspect]
     Active Substance: CYCLOPHOSPHAMIDE
     Dosage: 900 MILLIGRAM, TID
     Route: 042
     Dates: start: 20201130, end: 20210201
  10. ADO-TRASTUZUMAB EMTANSINE [Suspect]
     Active Substance: ADO-TRASTUZUMAB EMTANSINE
     Indication: HER2 positive breast cancer
     Dosage: 220 MILLIGRAM, Q3WK (TIW)
     Route: 042
     Dates: start: 20180420, end: 20180622
  11. DOCETAXEL [Suspect]
     Active Substance: DOCETAXEL
     Indication: Breast cancer metastatic
     Dosage: 100 MG, TIW (6 CYCLES (PLANNED NUMBER OF CYCLES COMPLETED)
     Route: 042
     Dates: start: 20170508, end: 20170829
  12. PERTUZUMAB [Suspect]
     Active Substance: PERTUZUMAB
     Indication: HER2 positive breast cancer
     Dosage: 840 MG, TIW (DOSE MODIFIED)
     Route: 042
     Dates: start: 20170508, end: 20170508
  13. PERTUZUMAB [Suspect]
     Active Substance: PERTUZUMAB
     Dosage: 420 MG, TIW (PLANEED NUMBER OF CYCLES)
     Route: 042
     Dates: start: 20170520, end: 20180103
  14. PERTUZUMAB [Suspect]
     Active Substance: PERTUZUMAB
     Dosage: 420 MG, TIW (PLANNED NUMBER OF CYCLES COMPLETED)
     Route: 042
     Dates: start: 20170529, end: 20180103
  15. AMITRIPTYLINE [Concomitant]
     Active Substance: AMITRIPTYLINE
     Indication: Anxiety
     Dosage: 10 MILLIGRAM
     Route: 048
     Dates: start: 2017
  16. AMITRIPTYLINE [Concomitant]
     Active Substance: AMITRIPTYLINE
     Indication: Depression
  17. ATORVASTATIN [Concomitant]
     Active Substance: ATORVASTATIN
     Indication: Ejection fraction decreased
     Dosage: 40 MILLIGRAM, QD
     Route: 048
     Dates: start: 2017, end: 20210831
  18. BETAHISTINE [Concomitant]
     Active Substance: BETAHISTINE
     Indication: Adverse event
     Dosage: 16 MG, TID
     Route: 048
     Dates: start: 20200102, end: 202002
  19. CARVEDILOL [Concomitant]
     Active Substance: CARVEDILOL
     Indication: Ejection fraction decreased
     Dosage: 6.25 MILLIGRAM, QD
     Route: 048
     Dates: start: 20180130, end: 20210831
  20. CARVEDILOL [Concomitant]
     Active Substance: CARVEDILOL
     Indication: Adverse event
     Dosage: 4187.5 MILLIGRAM
  21. CLARITHROMYCIN [Concomitant]
     Active Substance: CLARITHROMYCIN
     Indication: Adverse event
     Dosage: 500 MILLIGRAM, BID
     Route: 048
     Dates: start: 20210705, end: 20210711
  22. AMOXICILLIN\CLAVULANATE POTASSIUM [Concomitant]
     Active Substance: AMOXICILLIN\CLAVULANATE POTASSIUM
     Indication: Pyrexia
     Dosage: 625 MG, TID
     Route: 048
     Dates: start: 20210705, end: 20210711
  23. AMOXICILLIN\CLAVULANATE POTASSIUM [Concomitant]
     Active Substance: AMOXICILLIN\CLAVULANATE POTASSIUM
     Dosage: 625 MG, TID
     Route: 048
     Dates: start: 20190411, end: 20190417
  24. AMOXICILLIN\CLAVULANATE POTASSIUM [Concomitant]
     Active Substance: AMOXICILLIN\CLAVULANATE POTASSIUM
     Dosage: 1875 MILLIGRAM, QD
     Route: 048
     Dates: start: 20190411, end: 20190417
  25. CODEINE PHOSPHATE [Concomitant]
     Active Substance: CODEINE PHOSPHATE
     Indication: Pain
     Dosage: 30 MILLIGRAM, QID
     Route: 048
     Dates: start: 20200710, end: 20200812
  26. DALTEPARIN [Concomitant]
     Active Substance: DALTEPARIN
     Indication: Adverse event
     Dosage: UNK (12500 U)
     Route: 058
     Dates: start: 20200402, end: 20200402
  27. DEXAMETHASONE [Concomitant]
     Active Substance: DEXAMETHASONE
     Indication: Product used for unknown indication
     Dosage: 4 MILLIGRAM, UNK
     Route: 048
     Dates: start: 20201019, end: 20210201
  28. DEXAMETHASONE [Concomitant]
     Active Substance: DEXAMETHASONE
     Dosage: 16 MILLIGRAM, UNK
     Route: 048
     Dates: start: 20210729, end: 20210831
  29. DEXAMETHASONE SODIUM PHOSPHATE [Concomitant]
     Active Substance: DEXAMETHASONE SODIUM PHOSPHATE
     Indication: Product used for unknown indication
     Dosage: 8 MILLIGRAM, UNK
     Route: 042
     Dates: start: 20201019, end: 20210201
  30. DOCUSATE SODIUM [Concomitant]
     Active Substance: DOCUSATE SODIUM
     Indication: Product used for unknown indication
     Dosage: 200 MILLIGRAM, UNK
     Route: 048
     Dates: start: 20201019, end: 20210831
  31. DOMPERIDONE [Concomitant]
     Active Substance: DOMPERIDONE
     Indication: Product used for unknown indication
     Dosage: 10 MILLIGRAM, UNK
     Route: 048
     Dates: start: 20201019, end: 20201025
  32. EPIRUBICIN [Concomitant]
     Active Substance: EPIRUBICIN
     Indication: Product used for unknown indication
     Dosage: 120 MG, TIW (PLANNED NUMBER OF CYCLES COMPLETED)
     Route: 065
     Dates: start: 20201019, end: 20210201
  33. FRUSEMIDE ALMUS [Concomitant]
     Indication: Ejection fraction decreased
     Dosage: 20 MILLIGRAM, QD
     Route: 048
     Dates: start: 20180406, end: 20190128
  34. LANSOPRAZOLE [Concomitant]
     Active Substance: LANSOPRAZOLE
     Indication: Gastrooesophageal reflux disease
     Dosage: 60 MG, QD
     Route: 048
     Dates: start: 20170905
  35. LANSOPRAZOLE [Concomitant]
     Active Substance: LANSOPRAZOLE
     Dosage: 30 MG (0.5 D)
     Route: 048
     Dates: start: 20170905, end: 20210831
  36. POLYETHYLENE GLYCOL 3350\POTASSIUM CHLORIDE\SODIUM BICARBONATE\SODIUM [Concomitant]
     Active Substance: POLYETHYLENE GLYCOL 3350\POTASSIUM CHLORIDE\SODIUM BICARBONATE\SODIUM CHLORIDE
     Indication: Adverse event
     Dosage: 2 DOSAGE FORM, BID
     Route: 048
     Dates: start: 20201014, end: 20210831
  37. LISINOPRIL [Concomitant]
     Active Substance: LISINOPRIL
     Indication: Ejection fraction decreased
     Dosage: 20 MG, QD
     Route: 048
     Dates: start: 20180130, end: 20210831
  38. MIRTAZAPINE [Concomitant]
     Active Substance: MIRTAZAPINE
     Indication: Insomnia
     Dosage: 15 MG
     Route: 048
     Dates: start: 20210608, end: 20210831
  39. MORPHINE SULFATE [Concomitant]
     Active Substance: MORPHINE SULFATE
     Indication: Pain
     Dosage: 30 MG, BID
     Route: 048
     Dates: end: 20210615
  40. MORPHINE SULFATE [Concomitant]
     Active Substance: MORPHINE SULFATE
     Indication: Adverse event
     Dosage: UNK
     Route: 065
     Dates: start: 201912, end: 2020
  41. MORPHINE SULFATE [Concomitant]
     Active Substance: MORPHINE SULFATE
     Dosage: 10 MG
     Route: 048
     Dates: end: 20210831
  42. MORPHINE SULFATE [Concomitant]
     Active Substance: MORPHINE SULFATE
     Dosage: 40 MG, BID
     Route: 048
     Dates: start: 20210616, end: 20210831
  43. OMEPRAZOLE [Concomitant]
     Active Substance: OMEPRAZOLE
     Indication: Dyspepsia
     Dosage: 20 MG, QD
     Route: 048
     Dates: end: 20210831
  44. ONDANSETRON [Concomitant]
     Active Substance: ONDANSETRON
     Indication: Product used for unknown indication
     Dosage: 8 MG
     Route: 048
     Dates: start: 20201019, end: 20210201
  45. ACETAMINOPHEN [Concomitant]
     Active Substance: ACETAMINOPHEN
     Indication: Product used for unknown indication
     Dosage: UNK
     Route: 065
     Dates: start: 201912, end: 2020
  46. ACETAMINOPHEN [Concomitant]
     Active Substance: ACETAMINOPHEN
  47. SENNA LEAF [Concomitant]
     Active Substance: SENNA LEAF
     Indication: Adverse event
     Dosage: 15 MG, QD
     Route: 048
     Dates: start: 20201014, end: 20210831
  48. ZOLEDRONIC ACID [Concomitant]
     Active Substance: ZOLEDRONIC ACID
     Indication: Product used for unknown indication
     Dosage: 4 MG
     Route: 042
     Dates: start: 20201109, end: 20210705

REACTIONS (3)
  - Headache [Not Recovered/Not Resolved]
  - Vertigo [Recovering/Resolving]
  - Off label use [Unknown]

NARRATIVE: CASE EVENT DATE: 20191201
